FAERS Safety Report 5277142-4 (Version None)
Quarter: 2007Q1

REPORT INFORMATION
  Report Type: 
  Country: None (occurrence: None)
  Receive Date: 20070322
  Receipt Date: 20070322
  Transmission Date: 20070707
  Serious: No
  Sender: FDA-Public Use
  Company Number: None

PATIENT
  Sex: Female
  Weight: 92.9874 kg

DRUGS (1)
  1. AMBIEN CR [Suspect]

REACTIONS (4)
  - AMNESIA [None]
  - FALL [None]
  - HEAD INJURY [None]
  - PERIORBITAL HAEMATOMA [None]
